FAERS Safety Report 15409035 (Version 2)
Quarter: 2018Q3

REPORT INFORMATION
  Report Type: Spontaneous
  Country: PL (occurrence: PL)
  Receive Date: 20180920
  Receipt Date: 20180924
  Transmission Date: 20181010
  Serious: Yes (Hospitalization, Other)
  Sender: FDA-Public Use
  Company Number: PL-JNJFOC-20180921899

PATIENT
  Sex: Female

DRUGS (11)
  1. SPIRONOL [Concomitant]
     Active Substance: SPIRONOLACTONE
     Route: 065
  2. XARELTO [Suspect]
     Active Substance: RIVAROXABAN
     Indication: ATRIAL FIBRILLATION
     Route: 048
  3. KALIPOZ [Concomitant]
     Active Substance: POTASSIUM CHLORIDE
     Route: 065
  4. THEOSPIREX [Concomitant]
     Active Substance: THEOPHYLLINE ANHYDROUS
     Route: 065
  5. FORADIL [Concomitant]
     Active Substance: FORMOTEROL FUMARATE
     Route: 065
  6. DIGOXIN ALMUS [Concomitant]
     Route: 065
  7. AMLOZEK [Concomitant]
     Active Substance: AMLODIPINE BESYLATE
     Route: 065
  8. PULMICORT TURBUHALER [Concomitant]
     Active Substance: BUDESONIDE
     Route: 065
  9. ATROVENT [Concomitant]
     Active Substance: IPRATROPIUM BROMIDE
     Route: 065
  10. FUROSEMIDE. [Concomitant]
     Active Substance: FUROSEMIDE
     Route: 065
  11. LANSOPRAZOLE. [Concomitant]
     Active Substance: LANSOPRAZOLE
     Route: 065

REACTIONS (1)
  - Transient ischaemic attack [Unknown]
